FAERS Safety Report 5587817-5 (Version None)
Quarter: 2007Q4

REPORT INFORMATION
  Report Type: 
  Country: None (occurrence: None)
  Receive Date: 20071210
  Receipt Date: 20061019
  Transmission Date: 20080405
  Serious: Yes (Other)
  Sender: FDA-Public Use
  Company Number: SPV1-2006-01264

PATIENT
  Age: 11 Year
  Sex: Male
  Weight: 43.1 kg

DRUGS (1)
  1. ADDERALL XR 30 [Suspect]
     Indication: ATTENTION DEFICIT/HYPERACTIVITY DISORDER
     Dosage: 30 MG, 1X/DAY:QD, ORAL
     Route: 048
     Dates: start: 20061014, end: 20061017

REACTIONS (6)
  - ABDOMINAL PAIN UPPER [None]
  - AGITATION [None]
  - CHEST PAIN [None]
  - DELUSION [None]
  - IRRITABILITY [None]
  - PSYCHOTIC DISORDER [None]
